FAERS Safety Report 8446851-8 (Version None)
Quarter: 2012Q2

REPORT INFORMATION
  Report Type: 
  Country: None (occurrence: None)
  Receive Date: 20120612
  Receipt Date: 20120612
  Transmission Date: 20120825
  Serious: No
  Sender: FDA-Public Use
  Company Number: None

PATIENT
  Sex: Male
  Weight: 88.4514 kg

DRUGS (1)
  1. PICATO - INGENOL, 0.015%, MEBUTATE-GEL, LEO PHARMA [Suspect]
     Indication: PHOTODERMATOSIS
     Dosage: .47 GRAM, DAILY FOR 3 DAYS, TOP
     Route: 061
     Dates: start: 20120529, end: 20120529

REACTIONS (1)
  - KERATITIS [None]
